FAERS Safety Report 4861885-8 (Version None)
Quarter: 2005Q4

REPORT INFORMATION
  Report Type: 
  Country: None (occurrence: None)
  Receive Date: 20051130
  Receipt Date: 20050804
  Transmission Date: 20060501
  Serious: No
  Sender: FDA-Public Use
  Company Number: FABR-11192

PATIENT
  Age: 21 Year
  Sex: Male

DRUGS (1)
  1. FABRAZYME [Suspect]
     Indication: FABRY'S DISEASE
     Dosage: 70 MG Q3WKS IV
     Route: 042
     Dates: start: 20030725

REACTIONS (2)
  - HEARING IMPAIRED [None]
  - TINNITUS [None]
